FAERS Safety Report 24370324 (Version 1)
Quarter: 2024Q3

REPORT INFORMATION
  Report Type: Spontaneous
  Country: US (occurrence: US)
  Receive Date: 20240927
  Receipt Date: 20240927
  Transmission Date: 20241017
  Serious: Yes (Other)
  Sender: INSMED
  Company Number: US-INSMED, INC.-2024-03751-US

PATIENT

DRUGS (1)
  1. ARIKAYCE [Suspect]
     Active Substance: AMIKACIN
     Indication: Product used for unknown indication
     Dosage: UNK, UNK
     Route: 055

REACTIONS (9)
  - Immune system disorder [Not Recovered/Not Resolved]
  - Pneumonia bacterial [Unknown]
  - Pneumonia [Unknown]
  - Ophthalmic herpes zoster [Not Recovered/Not Resolved]
  - Urinary tract infection [Not Recovered/Not Resolved]
  - Escherichia infection [Not Recovered/Not Resolved]
  - Fungal infection [Not Recovered/Not Resolved]
  - Fear of disease [Not Recovered/Not Resolved]
  - Fatigue [Not Recovered/Not Resolved]
